FAERS Safety Report 15866822 (Version 1)
Quarter: 2019Q1

REPORT INFORMATION
  Report Type: Spontaneous
  Country: US (occurrence: US)
  Receive Date: 20190125
  Receipt Date: 20190125
  Transmission Date: 20190417
  Serious: No
  Sender: FDA-Public Use
  Company Number: US-DSJP-DSU-2018-112251

PATIENT

DRUGS (3)
  1. CEVIMELINE. [Suspect]
     Active Substance: CEVIMELINE
     Indication: SJOGREN^S SYNDROME
     Dosage: UNK
     Route: 065
  2. BIOTIN [Suspect]
     Active Substance: BIOTIN
     Indication: SJOGREN^S SYNDROME
     Dosage: UNK
     Route: 065
  3. EVOXAC [Suspect]
     Active Substance: CEVIMELINE HYDROCHLORIDE
     Indication: SJOGREN^S SYNDROME
     Dosage: 30 MG, TID
     Route: 048
     Dates: start: 2015, end: 2017

REACTIONS (4)
  - Weight decreased [Not Recovered/Not Resolved]
  - Eating disorder [Not Recovered/Not Resolved]
  - Dry eye [Not Recovered/Not Resolved]
  - Dry mouth [Not Recovered/Not Resolved]
